FAERS Safety Report 9479771 (Version 1)
Quarter: 2013Q3

REPORT INFORMATION
  Report Type: Spontaneous
  Country: US (occurrence: US)
  Receive Date: 20130828
  Receipt Date: 20130828
  Transmission Date: 20140515
  Serious: Yes (Other)
  Sender: FDA-Public Use
  Company Number: US-AMGEN-USASP2011039287

PATIENT
  Sex: Female

DRUGS (2)
  1. ENBREL [Suspect]
     Indication: RHEUMATOID ARTHRITIS
     Dosage: 50 MG, QWK
     Route: 065
     Dates: start: 20000601, end: 20110301
  2. METHOTREXATE [Concomitant]
     Dosage: 5 MG, QWK
     Dates: start: 2000, end: 201103

REACTIONS (1)
  - Blood count abnormal [Not Recovered/Not Resolved]
